FAERS Safety Report 6803901-X (Version None)
Quarter: 2010Q2

REPORT INFORMATION
  Report Type: 
  Country: None (occurrence: None)
  Receive Date: 20100628
  Receipt Date: 20100625
  Transmission Date: 20101027
  Serious: Yes (Life-Threatening, Hospitalization, Other)
  Sender: FDA-Public Use
  Company Number: PHHO2010NL09032

PATIENT
  Sex: Male
  Weight: 54.3 kg

DRUGS (1)
  1. ACZ885 ACZ+ [Suspect]
     Indication: JUVENILE ARTHRITIS
     Dosage: 4MG / KG
     Route: 058
     Dates: start: 20100412, end: 20100609

REACTIONS (8)
  - COMPUTERISED TOMOGRAM ABNORMAL [None]
  - EPSTEIN-BARR VIRUS INFECTION [None]
  - HISTIOCYTOSIS HAEMATOPHAGIC [None]
  - INTERSTITIAL LUNG DISEASE [None]
  - MECHANICAL VENTILATION [None]
  - PULMONARY HYPERTENSION [None]
  - PYREXIA [None]
  - VENOOCCLUSIVE DISEASE [None]
